FAERS Safety Report 4319051-0 (Version None)
Quarter: 2004Q1

REPORT INFORMATION
  Report Type: 
  Country: None (occurrence: None)
  Receive Date: 20040316
  Receipt Date: 20040301
  Transmission Date: 20041129
  Serious: Yes (Death, Life-Threatening, Hospitalization, Disabling)
  Sender: FDA-Public Use
  Company Number: 2003GB01583

PATIENT
  Age: 60 Year
  Sex: Male
  Weight: 75.2 kg

DRUGS (1)
  1. GEFITINIB [Suspect]
     Indication: NON-SMALL CELL LUNG CANCER
     Dosage: 250 MG QD PO
     Route: 048
     Dates: start: 20030224, end: 20030413

REACTIONS (5)
  - ACUTE RESPIRATORY FAILURE [None]
  - DRUG INEFFECTIVE [None]
  - HYPOXIA [None]
  - INTERSTITIAL LUNG DISEASE [None]
  - MALAISE [None]
